FAERS Safety Report 6542294-2 (Version None)
Quarter: 2010Q1

REPORT INFORMATION
  Report Type: 
  Country: None (occurrence: None)
  Receive Date: 20100114
  Receipt Date: 20100114
  Transmission Date: 20100710
  Serious: Yes (Death)
  Sender: FDA-Public Use
  Company Number: None

PATIENT
  Sex: Female

DRUGS (6)
  1. REVLIMID [Suspect]
     Indication: MULTIPLE MYELOMA
     Dosage: 5 MG DAILY ORALLY
     Route: 048
     Dates: start: 20080201, end: 20090101
  2. PROCRIT [Concomitant]
  3. FENTANYL CITRATE [Concomitant]
  4. LEVOTHROID [Concomitant]
  5. ALKERAN [Concomitant]
  6. DEXAMETHASONE [Concomitant]

REACTIONS (1)
  - UNEVALUABLE EVENT [None]
